FAERS Safety Report 8399617-1 (Version None)
Quarter: 2012Q2

REPORT INFORMATION
  Report Type: 
  Country: None (occurrence: None)
  Receive Date: 20120531
  Receipt Date: 20120518
  Transmission Date: 20120825
  Serious: No
  Sender: FDA-Public Use
  Company Number: US-ENDO PHARMACEUTICALS INC.-OPER20120490

PATIENT
  Sex: Female
  Weight: 70.597 kg

DRUGS (10)
  1. VITAMIN D [Concomitant]
     Route: 048
  2. OPANA ER [Suspect]
     Indication: PAIN
     Route: 048
     Dates: end: 20111109
  3. MOBIC [Concomitant]
     Indication: PAIN
     Route: 048
     Dates: start: 20070101
  4. OPANA ER [Suspect]
     Route: 048
     Dates: start: 20070101
  5. CYMBALTA [Concomitant]
     Indication: PRODUCT USED FOR UNKNOWN INDICATION
     Route: 048
  6. PLAQUENIL [Concomitant]
     Indication: PAIN
     Route: 048
  7. OPANA ER [Suspect]
     Route: 048
     Dates: start: 20111101, end: 20120104
  8. NORCO [Concomitant]
     Indication: PAIN
     Dosage: 10/325 MG
     Route: 048
     Dates: start: 20070101
  9. OPANA ER [Suspect]
     Route: 048
     Dates: start: 20120101, end: 20120201
  10. TOPAMAX [Concomitant]
     Indication: PAIN
     Route: 048
     Dates: start: 20070101

REACTIONS (1)
  - CONSTIPATION [None]
